FAERS Safety Report 10942078 (Version 2)
Quarter: 2015Q2

REPORT INFORMATION
  Report Type: Spontaneous
  Country: US (occurrence: US)
  Receive Date: 20150322
  Receipt Date: 20150524
  Transmission Date: 20150821
  Serious: Yes (Hospitalization)
  Sender: FDA-Public Use
  Company Number: US-JNJFOC-20141101405

PATIENT
  Age: 63 Year
  Sex: Male
  Weight: 103.6 kg

DRUGS (3)
  1. SPIRONOLACTONE. [Concomitant]
     Active Substance: SPIRONOLACTONE
  2. LASIX [Concomitant]
     Active Substance: FUROSEMIDE
     Dosage: ^PM^
  3. INVOKANA [Suspect]
     Active Substance: CANAGLIFLOZIN
     Indication: TYPE 2 DIABETES MELLITUS
     Route: 048
     Dates: start: 20140926, end: 20141023

REACTIONS (3)
  - Hyperkalaemia [Recovered/Resolved]
  - Glomerular filtration rate decreased [Recovered/Resolved]
  - Blood creatinine increased [Unknown]

NARRATIVE: CASE EVENT DATE: 20141023
